FAERS Safety Report 13540471 (Version 2)
Quarter: 2018Q1

REPORT INFORMATION
  Report Type: Spontaneous
  Country: US (occurrence: US)
  Receive Date: 20170512
  Receipt Date: 20180212
  Transmission Date: 20180508
  Serious: Yes (Hospitalization, Other)
  Sender: FDA-Public Use
  Company Number: US-ASTRAZENECA-2017SE49866

PATIENT
  Age: 68 Year
  Sex: Female
  Weight: 64.9 kg

DRUGS (5)
  1. XANAX [Concomitant]
     Active Substance: ALPRAZOLAM
     Indication: PANIC ATTACK
     Dosage: 0.025MG AS REQUIRED
     Route: 065
  2. CRESTOR [Suspect]
     Active Substance: ROSUVASTATIN CALCIUM
     Indication: HYPERCHOLESTEROLAEMIA
     Route: 048
     Dates: start: 20170502
  3. SYNTHROID [Concomitant]
     Active Substance: LEVOTHYROXINE SODIUM
     Indication: HYPOTHYROIDISM
     Route: 048
  4. VALIUM [Concomitant]
     Active Substance: DIAZEPAM
     Indication: HYPERTENSION
     Dosage: 5.0MG AS REQUIRED
     Route: 048
  5. CRESTOR [Suspect]
     Active Substance: ROSUVASTATIN CALCIUM
     Indication: HYPERCHOLESTEROLAEMIA
     Route: 048
     Dates: start: 2012, end: 2012

REACTIONS (14)
  - Depressed mood [Unknown]
  - Oesophageal food impaction [Unknown]
  - Eructation [Unknown]
  - Pain [Unknown]
  - Palpitations [Recovered/Resolved]
  - Neck pain [Unknown]
  - Chest pain [Unknown]
  - Eye burns [Not Recovered/Not Resolved]
  - Biliary colic [Unknown]
  - Hypertension [Not Recovered/Not Resolved]
  - Ill-defined disorder [Unknown]
  - Blood sodium decreased [Recovered/Resolved]
  - Headache [Not Recovered/Not Resolved]
  - Blood cholesterol increased [Not Recovered/Not Resolved]

NARRATIVE: CASE EVENT DATE: 2012
